FAERS Safety Report 8366879-6 (Version None)
Quarter: 2012Q2

REPORT INFORMATION
  Report Type: 
  Country: None (occurrence: None)
  Receive Date: 20120517
  Receipt Date: 20120511
  Transmission Date: 20120825
  Serious: Yes (Other)
  Sender: FDA-Public Use
  Company Number: US-PFIZER INC-2012115145

PATIENT
  Age: 54 Year
  Sex: Female
  Weight: 64.399 kg

DRUGS (1)
  1. PREPARATION H [Suspect]
     Indication: HAEMORRHOIDS
     Dosage: UNK
     Route: 054
     Dates: start: 19650101

REACTIONS (1)
  - MEGACOLON [None]
